FAERS Safety Report 24995240 (Version 3)
Quarter: 2025Q3

REPORT INFORMATION
  Report Type: Report from Study
  Country: JP (occurrence: JP)
  Receive Date: 20250221
  Receipt Date: 20250714
  Transmission Date: 20251020
  Serious: Yes (Death)
  Sender: PFIZER
  Company Number: JP-PFIZER INC-202500040496

PATIENT
  Age: 76 Year
  Sex: Male

DRUGS (1)
  1. ELRANATAMAB [Suspect]
     Active Substance: ELRANATAMAB
     Indication: Plasma cell myeloma
     Dates: start: 20241016

REACTIONS (2)
  - Plasma cell myeloma [Fatal]
  - Malignant neoplasm progression [Fatal]
